FAERS Safety Report 17957702 (Version 1)
Quarter: 2020Q2

REPORT INFORMATION
  Report Type: Spontaneous
  Country: US (occurrence: US)
  Receive Date: 20200629
  Receipt Date: 20200629
  Transmission Date: 20200714
  Serious: Yes (Death, Other)
  Sender: FDA-Public Use
  Company Number: US-BIOLOGICAL E. LTD-2086776

PATIENT
  Age: 80 Year
  Sex: Male
  Weight: 100 kg

DRUGS (16)
  1. DEXAMETHASONE 4 MG [Concomitant]
     Active Substance: DEXAMETHASONE
     Route: 065
  2. OXALIPLATIN 100 MG/20 ML [Suspect]
     Active Substance: OXALIPLATIN
     Route: 042
     Dates: start: 20191202, end: 20200217
  3. FOSAPREPITANT [Suspect]
     Active Substance: FOSAPREPITANT
     Indication: PREMEDICATION
     Route: 042
     Dates: end: 20200217
  4. PANTOPRAZOLE [Concomitant]
     Active Substance: PANTOPRAZOLE
     Route: 065
  5. OXALIPLATIN INJECTION (DIFFERENT MANUFACTURER) [Suspect]
     Active Substance: OXALIPLATIN
     Route: 042
     Dates: start: 20200217
  6. COMPAZINE [Concomitant]
     Active Substance: PROCHLORPERAZINE MALEATE
     Route: 065
  7. DEXAMETHASONE. [Suspect]
     Active Substance: DEXAMETHASONE
     Route: 042
     Dates: end: 20200217
  8. MELOXICAM. [Concomitant]
     Active Substance: MELOXICAM
     Route: 065
  9. IRON [Concomitant]
     Active Substance: IRON
     Route: 065
  10. ZOFRAN [Concomitant]
     Active Substance: ONDANSETRON HYDROCHLORIDE
     Route: 065
  11. PALONOSETRON HYDROCHLORIDE. [Suspect]
     Active Substance: PALONOSETRON HYDROCHLORIDE
     Route: 042
     Dates: end: 20200217
  12. LOMOTIL [Concomitant]
     Active Substance: ATROPINE SULFATE\DIPHENOXYLATE HYDROCHLORIDE
     Route: 065
  13. POTASSIUM SUPPLEMENTS [Concomitant]
     Active Substance: POTASSIUM
     Route: 065
  14. LEUCOVORIN. [Suspect]
     Active Substance: LEUCOVORIN
     Route: 042
     Dates: end: 20200217
  15. AMLODIPINE [Concomitant]
     Active Substance: AMLODIPINE BESYLATE
     Route: 065
  16. METOPROLOL SUCCINATE ER [Concomitant]
     Active Substance: METOPROLOL SUCCINATE
     Route: 065

REACTIONS (8)
  - Hyperhidrosis [Unknown]
  - Oxygen saturation decreased [Unknown]
  - Pallor [Unknown]
  - Cardiac arrest [Fatal]
  - Dyspnoea [Unknown]
  - Depressed level of consciousness [Unknown]
  - Tachycardia [Unknown]
  - Retching [Unknown]

NARRATIVE: CASE EVENT DATE: 20200217
